FAERS Safety Report 9322635 (Version 2)
Quarter: 2013Q3

REPORT INFORMATION
  Report Type: Spontaneous
  Country: GB (occurrence: GB)
  Receive Date: 20130531
  Receipt Date: 20130802
  Transmission Date: 20140515
  Serious: Yes (Other)
  Sender: FDA-Public Use
  Company Number: GB-B.I. PHARMACEUTICALS,INC./RIDGEFIELD-2013-UK-01170UK

PATIENT
  Age: 87 Year
  Sex: 0

DRUGS (1)
  1. SPIRIVA [Suspect]

REACTIONS (3)
  - Lower respiratory tract infection [Recovered/Resolved]
  - Sputum retention [Recovered/Resolved]
  - Dyspnoea [Recovered/Resolved]
